FAERS Safety Report 19479346 (Version 1)
Quarter: 2021Q2

REPORT INFORMATION
  Report Type: Spontaneous
  Country: BR (occurrence: BR)
  Receive Date: 20210630
  Receipt Date: 20210630
  Transmission Date: 20210717
  Serious: Yes (Death, Other)
  Sender: FDA-Public Use
  Company Number: BR-ELI_LILLY_AND_COMPANY-BR202106010787

PATIENT
  Age: 55 Year
  Sex: Female

DRUGS (5)
  1. RAMUCIRUMAB [Suspect]
     Active Substance: RAMUCIRUMAB
     Indication: PRODUCT USED FOR UNKNOWN INDICATION
     Dosage: UNK, CYCLICAL X4
     Route: 065
     Dates: start: 20200709, end: 20200821
  2. FOLFIRI [Concomitant]
     Active Substance: FLUOROURACIL\IRINOTECAN\LEUCOVORIN
     Dosage: UNK, CYCLICAL X8
     Route: 065
     Dates: end: 20201019
  3. FOLFIRI [Concomitant]
     Active Substance: FLUOROURACIL\IRINOTECAN\LEUCOVORIN
     Indication: PRODUCT USED FOR UNKNOWN INDICATION
     Dosage: UNK, CYCLICAL X4
     Route: 065
     Dates: start: 20200709, end: 20200821
  4. RAMUCIRUMAB [Suspect]
     Active Substance: RAMUCIRUMAB
     Dosage: UNK, CYCLICAL X8
     Route: 065
     Dates: end: 20201019
  5. PACLITAXEL. [Concomitant]
     Active Substance: PACLITAXEL
     Indication: PRODUCT USED FOR UNKNOWN INDICATION
     Dosage: UNK, CYCLICAL X2
     Route: 065
     Dates: start: 20201107, end: 20201222

REACTIONS (5)
  - Off label use [Unknown]
  - Death [Fatal]
  - Bone lesion [Unknown]
  - Malignant neoplasm progression [Unknown]
  - Lymphangitis [Unknown]

NARRATIVE: CASE EVENT DATE: 20210109
